FAERS Safety Report 16628849 (Version 2)
Quarter: 2019Q3

REPORT INFORMATION
  Report Type: Spontaneous
  Country: US (occurrence: US)
  Receive Date: 20190725
  Receipt Date: 20190816
  Transmission Date: 20191004
  Serious: No
  Sender: FDA-Public Use
  Company Number: US-VIFOR (INTERNATIONAL) INC.-VIT-2019-06423

PATIENT
  Sex: Female
  Weight: 47.22 kg

DRUGS (10)
  1. ALBUTEROL. [Concomitant]
     Active Substance: ALBUTEROL
     Indication: DYSPNOEA
  2. DAILYVIT [Concomitant]
  3. SODIUM BICARB [Concomitant]
     Active Substance: SODIUM BICARBONATE
  4. VELTASSA [Suspect]
     Active Substance: PATIROMER
     Route: 048
     Dates: start: 201904
  5. IPRATROPIUM BROMIDE. [Concomitant]
     Active Substance: IPRATROPIUM BROMIDE
     Indication: DYSPNOEA
  6. VELTASSA [Suspect]
     Active Substance: PATIROMER
     Route: 048
     Dates: start: 201907
  7. VELTASSA [Suspect]
     Active Substance: PATIROMER
     Indication: BLOOD POTASSIUM INCREASED
     Route: 048
     Dates: start: 20190328
  8. METOPROLOL. [Concomitant]
     Active Substance: METOPROLOL
     Dosage: 1/2 TABLET DAILY
  9. RENVELA [Concomitant]
     Active Substance: SEVELAMER CARBONATE
  10. VELTASSA [Suspect]
     Active Substance: PATIROMER
     Route: 048
     Dates: start: 201905, end: 201907

REACTIONS (8)
  - Feeling abnormal [Unknown]
  - Chronic obstructive pulmonary disease [Unknown]
  - Abdominal distension [Not Recovered/Not Resolved]
  - Circumstance or information capable of leading to medication error [Unknown]
  - Off label use [Unknown]
  - Product colour issue [Unknown]
  - Constipation [Recovering/Resolving]
  - Diarrhoea [Recovering/Resolving]

NARRATIVE: CASE EVENT DATE: 2019
